FAERS Safety Report 4903508-5 (Version None)
Quarter: 2006Q1

REPORT INFORMATION
  Report Type: 
  Country: None (occurrence: None)
  Receive Date: 20060208
  Receipt Date: 20060131
  Transmission Date: 20060701
  Serious: Yes (Hospitalization)
  Sender: FDA-Public Use
  Company Number: PHEH2006US01547

PATIENT
  Sex: Female

DRUGS (17)
  1. EXJADE [Suspect]
     Indication: BLOOD IRON INCREASED
     Dosage: 20 MG/KG, QD
     Route: 048
     Dates: start: 20060110, end: 20060122
  2. EFFEXOR XR [Concomitant]
  3. QUININE SULFATE [Concomitant]
  4. MECLIZINE [Concomitant]
  5. NEURONTIN [Concomitant]
  6. LOVENOX [Concomitant]
  7. FOLIC ACID [Concomitant]
  8. ALBUTEROL [Concomitant]
  9. SINGULAIR [Concomitant]
  10. EVOXAC [Concomitant]
  11. PROMETHAZINE HCL [Concomitant]
  12. SOMA [Concomitant]
  13. PREVACID [Concomitant]
  14. ALLEGRA [Concomitant]
  15. AVENTYL HCL [Concomitant]
  16. ADVAIR DISKUS 100/50 [Concomitant]
  17. AREDIA [Concomitant]

REACTIONS (4)
  - ABDOMINAL ADHESIONS [None]
  - ADHESIOLYSIS [None]
  - ILEUS [None]
  - SMALL INTESTINAL OBSTRUCTION [None]
